FAERS Safety Report 24544582 (Version 1)
Quarter: 2024Q4

REPORT INFORMATION
  Report Type: Spontaneous
  Country: US (occurrence: None)
  Receive Date: 20241023
  Receipt Date: 20241023
  Transmission Date: 20250114
  Serious: Yes (Death)
  Sender: Public
  Company Number: None

PATIENT
  Age: 76 Year
  Sex: Male

DRUGS (14)
  1. PIRFENIDONE [Suspect]
     Active Substance: PIRFENIDONE
     Indication: Idiopathic pulmonary fibrosis
     Dosage: FREQUENCY : TWICE A DAY;?
     Route: 048
     Dates: start: 20220712, end: 20240812
  2. BISOPROLOL [Concomitant]
  3. PANTOPRAZOLE [Concomitant]
  4. HYZAAR [Concomitant]
  5. METOCLOPRAMIDE [Concomitant]
  6. ATORVASTATIN [Concomitant]
  7. ONDANSETRON [Concomitant]
  8. IMITREX [Concomitant]
  9. PREDNISONE [Concomitant]
  10. TOPIRAMATE [Concomitant]
  11. MAGNESIUM OXIDE [Concomitant]
  12. VIT B-2 [Concomitant]
  13. NAPROXEN [Concomitant]
  14. VIT B-12 [Concomitant]

REACTIONS (1)
  - Interstitial lung disease [None]

NARRATIVE: CASE EVENT DATE: 20240920
